FAERS Safety Report 8067573-1 (Version None)
Quarter: 2012Q1

REPORT INFORMATION
  Report Type: 
  Country: None (occurrence: None)
  Receive Date: 20120124
  Receipt Date: 20120119
  Transmission Date: 20120608
  Serious: Yes (Hospitalization, Other)
  Sender: FDA-Public Use
  Company Number: US-VERTEX PHARMACEUTICALS INC.-AE-2012-001062

PATIENT
  Sex: Male
  Weight: 84 kg

DRUGS (3)
  1. RIBAVIRIN [Concomitant]
     Indication: HEPATITIS C
     Route: 048
     Dates: start: 20110808
  2. PEGASYS [Concomitant]
     Indication: HEPATITIS C
     Route: 058
     Dates: start: 20110808
  3. INCIVEK [Suspect]
     Indication: HEPATITIS C
     Route: 048
     Dates: start: 20110808, end: 20110930

REACTIONS (10)
  - TRANSFUSION [None]
  - ABDOMINAL DISTENSION [None]
  - FATIGUE [None]
  - STAPHYLOCOCCAL INFECTION [None]
  - BLOOD GLUCOSE INCREASED [None]
  - DECREASED APPETITE [None]
  - LETHARGY [None]
  - INTESTINAL OBSTRUCTION [None]
  - RESUSCITATION [None]
  - HAEMORRHOIDS [None]
